FAERS Safety Report 4276522-3 (Version None)
Quarter: 2004Q1

REPORT INFORMATION
  Report Type: 
  Country: None (occurrence: None)
  Receive Date: 20040120
  Receipt Date: 20040106
  Transmission Date: 20041129
  Serious: Yes (Hospitalization)
  Sender: FDA-Public Use
  Company Number: HQWYE008331DEC03

PATIENT
  Age: 44 Year
  Sex: Female
  Weight: 62.65 kg

DRUGS (1)
  1. ALESSE [Suspect]
     Indication: CONTRACEPTION
     Dosage: 1 TABLET DAILY, ORAL
     Route: 048
     Dates: start: 20030801, end: 20031206

REACTIONS (1)
  - PULMONARY EMBOLISM [None]
